FAERS Safety Report 8483668-2 (Version None)
Quarter: 2012Q3

REPORT INFORMATION
  Report Type: 
  Country: None (occurrence: None)
  Receive Date: 20120703
  Receipt Date: 20120620
  Transmission Date: 20120928
  Serious: Yes (Other)
  Sender: FDA-Public Use
  Company Number: BR-MYLANLABS-2012S1013046

PATIENT
  Age: 61 Year
  Sex: Male
  Weight: 84 kg

DRUGS (8)
  1. OXYBUTYNIN [Suspect]
     Indication: HYPERTONIC BLADDER
     Route: 065
  2. MIDAZOLAM [Concomitant]
     Indication: SEDATION
     Route: 042
  3. BUPIVACAINE HCL [Concomitant]
     Indication: SPINAL ANAESTHESIA
     Dosage: 12.5MG
     Route: 065
  4. SODIUM CHLORIDE [Concomitant]
     Indication: HYPOTENSION
     Dosage: 2000ML
     Route: 042
  5. SIMVASTATIN [Concomitant]
     Indication: HYPERCHOLESTEROLAEMIA
     Route: 065
  6. FENTANYL CITRATE [Suspect]
     Indication: SPINAL ANAESTHESIA
     Dosage: 15MICROG
     Route: 037
  7. SUFENTANIL CITRATE [Concomitant]
     Indication: SEDATION
     Route: 042
  8. EPHEDRINE [Concomitant]
     Indication: HYPOTENSION
     Dosage: 15MG
     Route: 065

REACTIONS (3)
  - HAEMATURIA [None]
  - URINARY RETENTION POSTOPERATIVE [None]
  - HAEMORRHAGE URINARY TRACT [None]
